FAERS Safety Report 10136298 (Version 1)
Quarter: 2014Q2

REPORT INFORMATION
  Report Type: Spontaneous
  Country: US (occurrence: US)
  Receive Date: 20140429
  Receipt Date: 20140429
  Transmission Date: 20141212
  Serious: Yes (Other)
  Sender: FDA-Public Use
  Company Number: US-JNJFOC-20140413807

PATIENT
  Age: 69 Year
  Sex: Male
  Weight: 79.83 kg

DRUGS (2)
  1. ZYTIGA [Suspect]
     Indication: PROSTATE CANCER
     Route: 048
     Dates: start: 20130819, end: 20140114
  2. RADIATION THERAPY NOS [Suspect]
     Indication: PROSTATE CANCER
     Dosage: 2 DOSES
     Route: 065

REACTIONS (2)
  - Skin discolouration [Unknown]
  - Skin exfoliation [Unknown]
